FAERS Safety Report 4952634-3 (Version None)
Quarter: 2006Q1

REPORT INFORMATION
  Report Type: 
  Country: None (occurrence: None)
  Receive Date: 20060320
  Receipt Date: 20060303
  Transmission Date: 20060701
  Serious: Yes (Hospitalization)
  Sender: FDA-Public Use
  Company Number: DSA_60723_2006

PATIENT
  Age: 5 Year
  Sex: Male

DRUGS (4)
  1. DIASTAT [Suspect]
     Indication: CONVULSION
     Dosage: 10 MG PRN RC
     Route: 054
  2. ZONEGRAN [Concomitant]
  3. LORAZEPAM [Concomitant]
  4. TRANXENE [Concomitant]

REACTIONS (4)
  - CONVULSION [None]
  - MEDICAL DEVICE COMPLICATION [None]
  - PHARMACEUTICAL PRODUCT COMPLAINT [None]
  - WRONG TECHNIQUE IN DRUG USAGE PROCESS [None]
